FAERS Safety Report 23578409 (Version 1)
Quarter: 2024Q1

REPORT INFORMATION
  Report Type: Spontaneous
  Country: DE (occurrence: DE)
  Receive Date: 20240229
  Receipt Date: 20240229
  Transmission Date: 20240410
  Serious: Yes (Life-Threatening, Hospitalization, Other)
  Sender: FDA-Public Use
  Company Number: None

PATIENT
  Age: 66 Year
  Sex: Male

DRUGS (2)
  1. PANTOPRAZOLE SODIUM [Suspect]
     Active Substance: PANTOPRAZOLE SODIUM
     Indication: Product used for unknown indication
     Dosage: STANDARD DOSE
     Dates: end: 2022
  2. INCLISIRAN [Suspect]
     Active Substance: INCLISIRAN
     Indication: Myopathy
     Dosage: UNK,  UNK
     Route: 058
     Dates: start: 202210

REACTIONS (2)
  - Condition aggravated [Unknown]
  - Hepatic fibrosis [Unknown]

NARRATIVE: CASE EVENT DATE: 20221001
